FAERS Safety Report 6809074-1 (Version None)
Quarter: 2010Q2

REPORT INFORMATION
  Report Type: 
  Country: None (occurrence: None)
  Receive Date: 20100630
  Receipt Date: 20100622
  Transmission Date: 20101027
  Serious: Yes (Hospitalization)
  Sender: FDA-Public Use
  Company Number: US-BIOGENIDEC-2010BI018937

PATIENT
  Age: 42 Year
  Sex: Female

DRUGS (2)
  1. TYSABRI [Suspect]
     Indication: MULTIPLE SCLEROSIS
     Route: 042
     Dates: start: 20070627, end: 20090401
  2. TYSABRI [Suspect]
     Route: 042
     Dates: start: 20100208, end: 20100501

REACTIONS (2)
  - DRUG INEFFECTIVE [None]
  - PNEUMONIA [None]
